FAERS Safety Report 22889643 (Version 5)
Quarter: 2023Q4

REPORT INFORMATION
  Report Type: Spontaneous
  Country: AU (occurrence: AU)
  Receive Date: 20230831
  Receipt Date: 20231114
  Transmission Date: 20240109
  Serious: No
  Sender: FDA-Public Use
  Company Number: AU-PFIZER INC-202300277058

PATIENT
  Age: 4 Year
  Sex: Male

DRUGS (1)
  1. NGENLA [Suspect]
     Active Substance: SOMATROGON-GHLA
     Dosage: 13.5 MG, WEEKLY

REACTIONS (1)
  - No adverse event [Unknown]
